FAERS Safety Report 10581998 (Version 1)
Quarter: 2014Q4

REPORT INFORMATION
  Report Type: Spontaneous
  Country: US (occurrence: US)
  Receive Date: 20141113
  Receipt Date: 20141113
  Transmission Date: 20150529
  Serious: No
  Sender: FDA-Public Use
  Company Number: US-BAYER-2014-167984

PATIENT
  Age: 78 Year
  Sex: Female
  Weight: 47 kg

DRUGS (2)
  1. ALEVE [Suspect]
     Active Substance: NAPROXEN SODIUM
     Indication: RELAXATION THERAPY
     Dosage: 2 DF, QD
     Route: 048
  2. ALEVE PM [Suspect]
     Active Substance: DIPHENHYDRAMINE HYDROCHLORIDE\NAPROXEN SODIUM
     Indication: RELAXATION THERAPY
     Dosage: 2 DF, PRN
     Route: 048
     Dates: start: 201410, end: 20141109

REACTIONS (2)
  - Intentional product misuse [None]
  - Incorrect drug administration duration [None]
